FAERS Safety Report 10091218 (Version 2)
Quarter: 2014Q2

REPORT INFORMATION
  Report Type: Report from Study
  Country: FR (occurrence: FR)
  Receive Date: 20140421
  Receipt Date: 20140512
  Transmission Date: 20141212
  Serious: Yes (Hospitalization, Other)
  Sender: FDA-Public Use
  Company Number: FR-BIOMARINAP-FR-2014-103013

PATIENT
  Age: 15 Year
  Sex: Female
  Weight: 23 kg

DRUGS (6)
  1. BMN 110 [Suspect]
     Indication: MUCOPOLYSACCHARIDOSIS IV
     Dosage: 45 MG, QW
     Route: 041
     Dates: start: 20140310, end: 20140414
  2. AMOXICILLIN [Concomitant]
     Indication: PRODUCT USED FOR UNKNOWN INDICATION
     Dosage: 2.5 G, QD
     Dates: start: 20140407
  3. SPASFON LYOC [Concomitant]
     Indication: PRODUCT USED FOR UNKNOWN INDICATION
  4. GAVISCON                           /01279001/ [Concomitant]
     Indication: PRODUCT USED FOR UNKNOWN INDICATION
     Dosage: UNK, PRN
  5. POLARAMINE [Concomitant]
     Indication: PREMEDICATION
     Dosage: 5 ML, UNK
     Route: 048
  6. VENTOLIN                           /00139501/ [Concomitant]
     Indication: PRODUCT USED FOR UNKNOWN INDICATION
     Dosage: UNK
     Dates: start: 20140331

REACTIONS (7)
  - Tremor [Recovered/Resolved]
  - Pyrexia [Recovered/Resolved]
  - Bronchospasm [Recovered/Resolved]
  - Pallor [Recovered/Resolved]
  - Cyanosis [Recovered/Resolved]
  - Wheezing [Recovered/Resolved]
  - Discomfort [Recovered/Resolved]
